FAERS Safety Report 26141922 (Version 2)
Quarter: 2025Q4

REPORT INFORMATION
  Report Type: Report from Study
  Country: US (occurrence: US)
  Receive Date: 20251210
  Receipt Date: 20251217
  Transmission Date: 20260118
  Serious: Yes (Hospitalization)
  Sender: EISAI
  Company Number: US-Eisai-EC-2025-201692

PATIENT
  Age: 58 Year
  Sex: Male

DRUGS (13)
  1. ARICEPT [Suspect]
     Active Substance: DONEPEZIL HYDROCHLORIDE
     Indication: Amnesia
     Route: 048
     Dates: start: 20250824, end: 20250921
  2. ARICEPT [Suspect]
     Active Substance: DONEPEZIL HYDROCHLORIDE
     Route: 048
     Dates: start: 20250922, end: 20251126
  3. LECANEMAB [Concomitant]
     Active Substance: LECANEMAB
     Indication: Dementia Alzheimer^s type
     Route: 042
     Dates: start: 20230824, end: 20240124
  4. LECANEMAB [Concomitant]
     Active Substance: LECANEMAB
     Route: 042
     Dates: start: 20240318, end: 20250126
  5. ETALANETUG [Concomitant]
     Active Substance: ETALANETUG
     Indication: Dementia Alzheimer^s type
     Route: 042
     Dates: start: 20240401
  6. VITAMIN D [Concomitant]
     Active Substance: VITAMIN D NOS
     Indication: Vitamin D decreased
     Route: 048
     Dates: start: 2019
  7. REMERON [Concomitant]
     Active Substance: MIRTAZAPINE
     Indication: Insomnia
     Route: 048
     Dates: start: 2022
  8. XANAX [Concomitant]
     Active Substance: ALPRAZOLAM
     Indication: Anxiety
     Route: 048
     Dates: start: 2022
  9. ZYRTEC [Concomitant]
     Active Substance: CETIRIZINE HYDROCHLORIDE
     Indication: Seasonal allergy
     Route: 048
     Dates: start: 2010
  10. VITAMIN B COMPLEX [Concomitant]
     Active Substance: CYANOCOBALAMIN\DEXPANTHENOL\NIACINAMIDE\PYRIDOXINE HYDROCHLORIDE\RIBOFLAVIN 5^-PHOSPHATE SODIUM\THIA
     Indication: Supplementation therapy
     Route: 048
     Dates: start: 2022
  11. DYNAMIC BRAIN SUPPORT [Concomitant]
     Indication: Supplementation therapy
     Route: 048
     Dates: start: 2022
  12. EXCEDRIN MIGRAINE [Concomitant]
     Active Substance: ACETAMINOPHEN\ASPIRIN\CAFFEINE
     Indication: Migraine
     Route: 048
     Dates: start: 2020
  13. DILTIAZEM [Concomitant]
     Active Substance: DILTIAZEM
     Indication: Migraine
     Route: 048
     Dates: start: 202107

REACTIONS (1)
  - Psychotic disorder [Recovered/Resolved]

NARRATIVE: CASE EVENT DATE: 20251122
